FAERS Safety Report 8436012-0 (Version None)
Quarter: 2012Q2

REPORT INFORMATION
  Report Type: 
  Country: None (occurrence: None)
  Receive Date: 20120614
  Receipt Date: 20120606
  Transmission Date: 20120825
  Serious: Yes (Death, Hospitalization)
  Sender: FDA-Public Use
  Company Number: GB-SANOFI-AVENTIS-2012SA041355

PATIENT
  Sex: Male

DRUGS (8)
  1. TAXOTERE [Suspect]
     Indication: NON-SMALL CELL LUNG CANCER STAGE IV
     Route: 041
     Dates: start: 20120312, end: 20120312
  2. TAXOTERE [Suspect]
     Route: 041
     Dates: start: 20120425, end: 20120425
  3. INVESTIGATIONAL DRUG [Suspect]
     Indication: NON-SMALL CELL LUNG CANCER STAGE IV
     Dates: start: 20120312
  4. INVESTIGATIONAL DRUG [Suspect]
     Dates: end: 20120425
  5. DEXAMETHASONE [Concomitant]
  6. LOPERAMIDE [Concomitant]
  7. OMEPRAZOLE [Concomitant]
  8. ACETAMINOPHEN [Concomitant]

REACTIONS (14)
  - DEATH [None]
  - NEUTROPHIL COUNT INCREASED [None]
  - HILAR LYMPHADENOPATHY [None]
  - DEEP VEIN THROMBOSIS [None]
  - DYSPNOEA [None]
  - THROMBOPHLEBITIS SUPERFICIAL [None]
  - OEDEMA PERIPHERAL [None]
  - BLOOD PRESSURE DIASTOLIC DECREASED [None]
  - BONE LESION [None]
  - METASTASES TO BONE [None]
  - VASCULAR OCCLUSION [None]
  - WHITE BLOOD CELL COUNT INCREASED [None]
  - LYMPHADENOPATHY MEDIASTINAL [None]
  - HAEMOGLOBIN DECREASED [None]
